FAERS Safety Report 7139368-4 (Version None)
Quarter: 2010Q4

REPORT INFORMATION
  Report Type: 
  Country: None (occurrence: None)
  Receive Date: 20101206
  Receipt Date: 20101130
  Transmission Date: 20110411
  Serious: Yes (Other)
  Sender: FDA-Public Use
  Company Number: US-GILEAD-2010-0033977

PATIENT
  Sex: Male

DRUGS (2)
  1. RANEXA [Suspect]
     Route: 048
     Dates: start: 20101129, end: 20101130
  2. AMIODARONE [Concomitant]

REACTIONS (2)
  - LOSS OF CONSCIOUSNESS [None]
  - SYNCOPE [None]
